FAERS Safety Report 6000542-1 (Version None)
Quarter: 2008Q4

REPORT INFORMATION
  Report Type: 
  Country: None (occurrence: None)
  Receive Date: 20081215
  Receipt Date: 20080731
  Transmission Date: 20090506
  Serious: No
  Sender: FDA-Public Use
  Company Number: US-BAYER-200814565BCC

PATIENT
  Age: 19 Year
  Sex: Male
  Weight: 76 kg

DRUGS (1)
  1. ALEVE [Suspect]
     Indication: OFF LABEL USE
     Dosage: TOTAL DAILY DOSE: 8580 MG  UNIT DOSE: 220 MG
     Route: 048
     Dates: start: 20080731

REACTIONS (1)
  - NO ADVERSE EVENT [None]
